FAERS Safety Report 4569649-X (Version None)
Quarter: 2005Q1

REPORT INFORMATION
  Report Type: 
  Country: None (occurrence: None)
  Receive Date: 20050201
  Receipt Date: 20050117
  Transmission Date: 20050727
  Serious: Yes (Death, Hospitalization)
  Sender: FDA-Public Use
  Company Number: 2004-06616

PATIENT
  Age: 35 Year
  Sex: Male
  Weight: 93 kg

DRUGS (5)
  1. TENOFOVIR DF (TENOFOVIR DISOPROXIL FUMARATE) [Suspect]
     Indication: HIV INFECTION
     Dosage: 300 MG ONCE  DAY ORAL
     Route: 048
     Dates: start: 20031103, end: 20040127
  2. KALETRA [Concomitant]
  3. LAMIVUDINE (LAMIVUDINE) [Concomitant]
  4. LASIX [Concomitant]
  5. SPIRONOLACTONE [Concomitant]

REACTIONS (23)
  - ASCITES [None]
  - CONDITION AGGRAVATED [None]
  - DEHYDRATION [None]
  - DYSPNOEA [None]
  - ENCEPHALOPATHY [None]
  - EPISTAXIS [None]
  - GINGIVAL BLEEDING [None]
  - HAEMATURIA [None]
  - HAEMOGLOBIN DECREASED [None]
  - HAEMOPHILIA [None]
  - HEART RATE DECREASED [None]
  - HEPATIC FAILURE [None]
  - HEPATORENAL SYNDROME [None]
  - HYPERKALAEMIA [None]
  - HYPONATRAEMIA [None]
  - HYPOTENSION [None]
  - KIDNEY ENLARGEMENT [None]
  - LIVER DISORDER [None]
  - MOUTH HAEMORRHAGE [None]
  - OEDEMA PERIPHERAL [None]
  - RENAL DISORDER [None]
  - RENAL FAILURE ACUTE [None]
  - THROMBOSIS [None]
